FAERS Safety Report 7435231-X (Version None)
Quarter: 2011Q2

REPORT INFORMATION
  Report Type: 
  Country: None (occurrence: None)
  Receive Date: 20110425
  Receipt Date: 20110421
  Transmission Date: 20111010
  Serious: Yes (Life-Threatening)
  Sender: FDA-Public Use
  Company Number: US-GENZYME-CAMP-1001584

PATIENT
  Sex: Female

DRUGS (12)
  1. METHYLPREDNISOLONE [Concomitant]
     Dosage: 1 G, QD
     Route: 042
     Dates: start: 20100222, end: 20100222
  2. BENADRYL [Concomitant]
     Dosage: 25 MG, ONCE
     Route: 042
     Dates: start: 20110420, end: 20110420
  3. ZYRTEC [Concomitant]
     Indication: PRODUCT USED FOR UNKNOWN INDICATION
     Dosage: 10 MG, UNK
     Route: 048
     Dates: start: 20110417, end: 20110420
  4. BENADRYL [Concomitant]
     Indication: INFUSION RELATED REACTION
     Dosage: 25 MG, ONCE
     Route: 048
     Dates: start: 20110420, end: 20110420
  5. METHYLPREDNISOLONE [Concomitant]
     Indication: MULTIPLE SCLEROSIS
     Dosage: 1 G, QD
     Route: 042
     Dates: start: 20090202, end: 20090204
  6. SOLU-MEDROL [Concomitant]
     Indication: PRODUCT USED FOR UNKNOWN INDICATION
     Dosage: 1 G, UNK
     Route: 042
     Dates: start: 20110420
  7. CAMPATH [Suspect]
     Dosage: 24 MG, QDX3
     Route: 042
     Dates: start: 20100202, end: 20100222
  8. CAMPATH [Suspect]
     Indication: MULTIPLE SCLEROSIS
     Dosage: 24 MG, QDX5
     Route: 042
     Dates: start: 20090202, end: 20090206
  9. PEPCID [Concomitant]
     Dosage: 20 MG, ONCE
     Route: 048
     Dates: start: 20110420, end: 20110420
  10. METHYLPREDNISOLONE [Concomitant]
     Dosage: 1 G, QD
     Route: 042
     Dates: start: 20100202, end: 20100202
  11. METHYLPREDNISOLONE [Concomitant]
     Dosage: 1 G, QD
     Route: 042
     Dates: start: 20100203, end: 20100203
  12. PEPCID [Concomitant]
     Indication: INFUSION RELATED REACTION
     Dosage: 20 MG, UNK
     Route: 048
     Dates: start: 20110419, end: 20110420

REACTIONS (1)
  - ANAPHYLACTOID REACTION [None]
